FAERS Safety Report 5638443-0 (Version None)
Quarter: 2008Q1

REPORT INFORMATION
  Report Type: 
  Country: None (occurrence: None)
  Receive Date: 20080221
  Receipt Date: 20080221
  Transmission Date: 20080703
  Serious: No
  Sender: FDA-Public Use
  Company Number: None

PATIENT
  Sex: Female
  Weight: 52.1637 kg

DRUGS (1)
  1. CHANTIX [Suspect]
     Indication: SMOKING CESSATION THERAPY
     Dates: start: 20071015, end: 20071215

REACTIONS (5)
  - ANXIETY [None]
  - DEPRESSION [None]
  - PARTNER STRESS [None]
  - SUICIDAL IDEATION [None]
  - WEIGHT INCREASED [None]
